FAERS Safety Report 10984161 (Version 1)
Quarter: 2015Q2

REPORT INFORMATION
  Report Type: Spontaneous
  Country: JP (occurrence: JP)
  Receive Date: 20150403
  Receipt Date: 20150403
  Transmission Date: 20150821
  Serious: Yes (Death)
  Sender: FDA-Public Use
  Company Number: JP-MALLINCKRODT-T201501870

PATIENT
  Age: 77 Year
  Sex: Female
  Weight: 49 kg

DRUGS (5)
  1. METHADONE [Suspect]
     Active Substance: METHADONE HYDROCHLORIDE
     Dosage: 15MG (DAILY DOSE 45MG)
     Route: 048
     Dates: start: 20140616, end: 20140630
  2. METHADONE [Suspect]
     Active Substance: METHADONE HYDROCHLORIDE
     Indication: CANCER PAIN
     Dosage: 5MG (DAILY DOSE 15MG)
     Route: 048
     Dates: start: 20140519, end: 20140531
  3. LOXOPROFEN [Concomitant]
     Active Substance: LOXOPROFEN
     Dosage: 180 MG
     Route: 048
     Dates: start: 20140524, end: 20140630
  4. METHADONE [Suspect]
     Active Substance: METHADONE HYDROCHLORIDE
     Dosage: 15MG (DAILY DOSE 30MG)
     Route: 048
     Dates: start: 20140601, end: 20140615
  5. OPSO [Concomitant]
     Active Substance: MORPHINE HYDROCHLORIDE
     Dosage: 10MG, P.R.N.
     Route: 048
     Dates: start: 20140512

REACTIONS (1)
  - Pleural mesothelioma malignant [Fatal]
